FAERS Safety Report 7817717-9 (Version None)
Quarter: 2011Q4

REPORT INFORMATION
  Report Type: 
  Country: None (occurrence: None)
  Receive Date: 20111017
  Receipt Date: 20111007
  Transmission Date: 20120403
  Serious: Yes (Other)
  Sender: FDA-Public Use
  Company Number: US-JNJFOC-20110806423

PATIENT
  Age: 82 Year
  Sex: Female
  Weight: 51.71 kg

DRUGS (3)
  1. ROGAINE (FOR WOMEN) [Suspect]
     Route: 061
  2. CHEMOTHERAPY [Suspect]
     Indication: MULTIPLE MYELOMA
     Route: 065
  3. ROGAINE (FOR WOMEN) [Suspect]
     Indication: ALOPECIA
     Route: 061
     Dates: start: 20030101

REACTIONS (2)
  - ALOPECIA [None]
  - MULTIPLE MYELOMA [None]
